FAERS Safety Report 8617412-2 (Version None)
Quarter: 2012Q3

REPORT INFORMATION
  Report Type: 
  Country: None (occurrence: None)
  Receive Date: 20120823
  Receipt Date: 20120817
  Transmission Date: 20120928
  Serious: No
  Sender: FDA-Public Use
  Company Number: US-009507513-1208USA008424

PATIENT

DRUGS (2)
  1. SAPHRIS [Suspect]
     Indication: DEPRESSION
     Dosage: 10 MG, BID
     Route: 060
     Dates: start: 20111201
  2. SERZONE [Concomitant]

REACTIONS (2)
  - MUSCLE TWITCHING [None]
  - DYSKINESIA [None]
